FAERS Safety Report 10243593 (Version 1)
Quarter: 2014Q2

REPORT INFORMATION
  Report Type: Spontaneous
  Country: US (occurrence: US)
  Receive Date: 20140618
  Receipt Date: 20140618
  Transmission Date: 20141212
  Serious: No
  Sender: FDA-Public Use
  Company Number: US-PFIZER INC-2014166793

PATIENT
  Age: 59 Year
  Sex: Male
  Weight: 86.17 kg

DRUGS (2)
  1. CELEBREX [Suspect]
     Indication: ANKYLOSING SPONDYLITIS
     Dosage: 200 MG, 2X/DAY
     Dates: end: 2007
  2. DIMENHYDRINATE [Concomitant]
     Indication: PROPHYLAXIS
     Dosage: 25 MG, AS NEEDED

REACTIONS (1)
  - Arthralgia [Unknown]
